FAERS Safety Report 23655416 (Version 1)
Quarter: 2024Q1

REPORT INFORMATION
  Report Type: Report from Study
  Country: US (occurrence: US)
  Receive Date: 20240320
  Receipt Date: 20240320
  Transmission Date: 20240410
  Serious: Yes (Other)
  Sender: FDA-Public Use
  Company Number: US-TAKEDA-2023TUS124958

PATIENT
  Age: 66 Year
  Sex: Female

DRUGS (3)
  1. FRUQUINTINIB [Suspect]
     Active Substance: FRUQUINTINIB
     Indication: Colon cancer
     Dosage: 5 MILLIGRAM, QD
     Route: 048
     Dates: start: 20231220
  2. FRUQUINTINIB [Suspect]
     Active Substance: FRUQUINTINIB
     Indication: Metastases to liver
     Dosage: 4 MILLIGRAM, QD
     Route: 048
  3. FRUQUINTINIB [Suspect]
     Active Substance: FRUQUINTINIB
     Indication: Cholangiocarcinoma

REACTIONS (7)
  - Cholangiocarcinoma [Unknown]
  - Biliary obstruction [Recovering/Resolving]
  - Constipation [Recovering/Resolving]
  - Blood bilirubin increased [Recovering/Resolving]
  - Faeces discoloured [Recovering/Resolving]
  - Chromaturia [Recovering/Resolving]
  - Blood pressure increased [Unknown]

NARRATIVE: CASE EVENT DATE: 20231223
